FAERS Safety Report 6857700-3 (Version None)
Quarter: 2010Q3

REPORT INFORMATION
  Report Type: 
  Country: None (occurrence: None)
  Receive Date: 20100719
  Receipt Date: 20080123
  Transmission Date: 20110219
  Serious: No
  Sender: FDA-Public Use
  Company Number: US-PFIZER INC-2008009428

PATIENT
  Sex: Female
  Weight: 63.5 kg

DRUGS (2)
  1. CHANTIX [Suspect]
     Indication: SMOKING CESSATION THERAPY
     Route: 048
     Dates: start: 20070907
  2. MONTELUKAST SODIUM [Concomitant]
     Dates: end: 20071201

REACTIONS (3)
  - HYPERHIDROSIS [None]
  - INSOMNIA [None]
  - WEIGHT INCREASED [None]
